FAERS Safety Report 19052194 (Version 1)
Quarter: 2021Q1

REPORT INFORMATION
  Report Type: Report from Study
  Country: None (occurrence: US)
  Receive Date: 20210324
  Receipt Date: 20210324
  Transmission Date: 20210420
  Serious: Yes (Other)
  Sender: FDA-Public Use
  Company Number: US-ABBVIE-21K-163-3736204-00

PATIENT
  Age: 66 Year
  Sex: Male
  Weight: 79 kg

DRUGS (1)
  1. HUMIRA [Suspect]
     Active Substance: ADALIMUMAB
     Indication: RHEUMATOID ARTHRITIS
     Dosage: CITRATE FREE
     Route: 058

REACTIONS (13)
  - Tooth disorder [Recovering/Resolving]
  - Gingival swelling [Recovering/Resolving]
  - Injection site bruising [Unknown]
  - Rheumatoid arthritis [Recovered/Resolved]
  - Injection site pain [Recovered/Resolved]
  - Localised infection [Unknown]
  - Therapeutic nerve ablation [Unknown]
  - Renal disorder [Unknown]
  - Gingival bleeding [Recovering/Resolving]
  - Skin disorder [Unknown]
  - Pain [Recovering/Resolving]
  - Weight decreased [Unknown]
  - Metabolic surgery [Unknown]

NARRATIVE: CASE EVENT DATE: 2016
